FAERS Safety Report 16016166 (Version 2)
Quarter: 2024Q1

REPORT INFORMATION
  Report Type: Spontaneous
  Country: CA (occurrence: CA)
  Receive Date: 20190228
  Receipt Date: 20240322
  Transmission Date: 20240410
  Serious: Yes (Other)
  Sender: FDA-Public Use
  Company Number: CA-AUROBINDO-AUR-APL-2019-010934

PATIENT
  Age: 89 Year
  Sex: Female

DRUGS (3)
  1. CEFPROZIL [Suspect]
     Active Substance: CEFPROZIL
     Indication: Product used for unknown indication
     Dosage: UNK
     Route: 065
  2. LUCENTIS [Suspect]
     Active Substance: RANIBIZUMAB
     Indication: Neovascular age-related macular degeneration
     Dosage: UNK
     Route: 031
  3. PREDNISONE [Suspect]
     Active Substance: PREDNISONE
     Indication: Product used for unknown indication
     Dosage: UNK
     Route: 065

REACTIONS (7)
  - Cough [Unknown]
  - Bronchitis [Unknown]
  - Diabetes mellitus [Unknown]
  - Hypersensitivity [Unknown]
  - Peripheral ischaemia [Unknown]
  - Respiratory tract infection [Unknown]
  - Urinary tract infection [Unknown]
